FAERS Safety Report 7410068-6 (Version None)
Quarter: 2011Q2

REPORT INFORMATION
  Report Type: 
  Country: None (occurrence: None)
  Receive Date: 20110412
  Receipt Date: 20110330
  Transmission Date: 20111010
  Serious: Yes (Other)
  Sender: FDA-Public Use
  Company Number: US-ELI_LILLY_AND_COMPANY-US200910002662

PATIENT
  Sex: Female

DRUGS (6)
  1. VITAMIN D [Concomitant]
  2. FORTEO [Suspect]
     Dosage: 20 UG, DAILY (1/D)
  3. FORTEO [Suspect]
     Dosage: 20 UG, QD
  4. FORTEO [Suspect]
     Dosage: 20 UG, DAILY (1/D)
  5. FORTEO [Suspect]
     Indication: OSTEOPOROSIS
     Dosage: 20 UG, DAILY (1/D)
     Dates: start: 20060830
  6. CALCIUM [Concomitant]

REACTIONS (8)
  - CATARACT [None]
  - CARDIAC VALVE DISEASE [None]
  - CARDIAC DISORDER [None]
  - ARRHYTHMIA [None]
  - TACHYCARDIA [None]
  - BLOOD ALKALINE PHOSPHATASE INCREASED [None]
  - BLOOD URIC ACID INCREASED [None]
  - LUNG DISORDER [None]
